FAERS Safety Report 11736506 (Version 1)
Quarter: 2015Q4

REPORT INFORMATION
  Report Type: Report from Study
  Country: MX (occurrence: MX)
  Receive Date: 20151113
  Receipt Date: 20151113
  Transmission Date: 20160304
  Serious: Yes (Death)
  Sender: FDA-Public Use
  Company Number: MX-ABBVIE-15K-107-1499868-00

PATIENT
  Sex: Male

DRUGS (1)
  1. HUMIRA [Suspect]
     Active Substance: ADALIMUMAB
     Indication: CROHN^S DISEASE
     Route: 058
     Dates: start: 20150528

REACTIONS (4)
  - Abdominal pain upper [Fatal]
  - Pulmonary thrombosis [Fatal]
  - Respiratory disorder [Fatal]
  - Abdominal sepsis [Fatal]
